FAERS Safety Report 19835035 (Version 1)
Quarter: 2021Q3

REPORT INFORMATION
  Report Type: Spontaneous
  Country: US (occurrence: US)
  Receive Date: 20210914
  Receipt Date: 20210914
  Transmission Date: 20211014
  Serious: Yes (Other)
  Sender: FDA-Public Use
  Company Number: US-SUNOVION-2021SUN003382

PATIENT
  Sex: Female
  Weight: 75.74 kg

DRUGS (1)
  1. LONHALA MAGNAIR [Suspect]
     Active Substance: GLYCOPYRROLATE
     Indication: CHRONIC OBSTRUCTIVE PULMONARY DISEASE
     Dosage: 25MCG/ 15 ML AS NECESSARY
     Route: 055
     Dates: end: 202108

REACTIONS (6)
  - Chest injury [Not Recovered/Not Resolved]
  - Pain [Not Recovered/Not Resolved]
  - Cough [Not Recovered/Not Resolved]
  - Treatment noncompliance [Unknown]
  - Therapy cessation [Unknown]
  - Fall [Not Recovered/Not Resolved]
